FAERS Safety Report 9494855 (Version 1)
Quarter: 2013Q3

REPORT INFORMATION
  Report Type: Spontaneous
  Country: FR (occurrence: FR)
  Receive Date: 20130903
  Receipt Date: 20130903
  Transmission Date: 20140515
  Serious: Yes (Hospitalization)
  Sender: FDA-Public Use
  Company Number: FR-JNJFOC-20130817305

PATIENT
  Age: 76 Year
  Sex: Male

DRUGS (6)
  1. TOPALGIC [Suspect]
     Indication: PRODUCT USED FOR UNKNOWN INDICATION
     Route: 065
     Dates: start: 20120920
  2. PARACETAMOL [Suspect]
     Route: 065
  3. PARACETAMOL [Suspect]
     Indication: PRODUCT USED FOR UNKNOWN INDICATION
     Route: 065
     Dates: start: 20120920
  4. DIPRIVAN [Suspect]
     Indication: INDUCTION OF ANAESTHESIA
     Route: 042
     Dates: start: 20120920
  5. AUGMENTIN [Suspect]
     Indication: PRODUCT USED FOR UNKNOWN INDICATION
     Route: 065
     Dates: start: 20120920
  6. REMIFENTANIL [Suspect]
     Indication: INDUCTION OF ANAESTHESIA
     Route: 042
     Dates: start: 20120920

REACTIONS (1)
  - Anaphylactic shock [Recovered/Resolved]
